FAERS Safety Report 18949002 (Version 2)
Quarter: 2025Q3

REPORT INFORMATION
  Report Type: Report from Study
  Country: US (occurrence: US)
  Receive Date: 20210227
  Receipt Date: 20250702
  Transmission Date: 20251020
  Serious: No
  Sender: TAKEDA
  Company Number: US-TAKEDA-2021TUS012431

PATIENT
  Age: 7 Year
  Sex: Male
  Weight: 19.955 kg

DRUGS (4)
  1. TEDUGLUTIDE [Suspect]
     Active Substance: TEDUGLUTIDE
     Indication: Short-bowel syndrome
     Dosage: UNK UNK, QD
     Dates: start: 20191006
  2. TEDUGLUTIDE [Suspect]
     Active Substance: TEDUGLUTIDE
     Dosage: UNK UNK, QD
  3. TEDUGLUTIDE [Suspect]
     Active Substance: TEDUGLUTIDE
  4. TEDUGLUTIDE [Suspect]
     Active Substance: TEDUGLUTIDE

REACTIONS (3)
  - No adverse event [Unknown]
  - Product dose omission issue [Unknown]
  - Product distribution issue [Unknown]

NARRATIVE: CASE EVENT DATE: 20210223
